FAERS Safety Report 7022209-3 (Version None)
Quarter: 2010Q3

REPORT INFORMATION
  Report Type: 
  Country: None (occurrence: None)
  Receive Date: 20100930
  Receipt Date: 20100924
  Transmission Date: 20110219
  Serious: Yes (Death, Other)
  Sender: FDA-Public Use
  Company Number: AU-ASTRAZENECA-2010SE45431

PATIENT
  Age: 356 Month
  Sex: Male

DRUGS (7)
  1. SEROQUEL [Suspect]
     Route: 048
     Dates: start: 20060101
  2. SEROQUEL [Suspect]
     Route: 048
     Dates: start: 20071120, end: 20071129
  3. SEROQUEL [Suspect]
     Dosage: THE PATIENT TOOK AT LEAST 100-200 MG TABLETS
     Route: 048
  4. EFFEXOR [Suspect]
  5. PANAMAX [Suspect]
  6. BENZODIAZAPINES [Suspect]
     Dates: start: 20050101
  7. CLEXANE [Concomitant]
     Dosage: DAILY

REACTIONS (5)
  - HALLUCINATION [None]
  - LIMB INJURY [None]
  - MULTIPLE DRUG OVERDOSE INTENTIONAL [None]
  - NAUSEA [None]
  - SUICIDE ATTEMPT [None]
